FAERS Safety Report 5482827-0 (Version None)
Quarter: 2007Q4

REPORT INFORMATION
  Report Type: 
  Country: None (occurrence: None)
  Receive Date: 20071011
  Receipt Date: 20071004
  Transmission Date: 20080405
  Serious: Yes (Hospitalization, Other)
  Sender: FDA-Public Use
  Company Number: US-PFIZER INC-2006147016

PATIENT
  Sex: Female
  Weight: 71.2 kg

DRUGS (3)
  1. CELEBREX [Suspect]
     Indication: PAIN
     Dates: start: 20020101, end: 20021201
  2. BEXTRA [Suspect]
     Indication: BACK PAIN
     Dates: start: 20030101
  3. VIOXX [Suspect]
     Indication: BACK PAIN
     Route: 048

REACTIONS (4)
  - CARDIAC FAILURE CONGESTIVE [None]
  - CARDIOVASCULAR DISORDER [None]
  - MYOCARDIAL INFARCTION [None]
  - PULMONARY EMBOLISM [None]
